FAERS Safety Report 8479682-3 (Version None)
Quarter: 2012Q2

REPORT INFORMATION
  Report Type: 
  Country: None (occurrence: None)
  Receive Date: 20120629
  Receipt Date: 20120621
  Transmission Date: 20120825
  Serious: No
  Sender: FDA-Public Use
  Company Number: US-BAYER-2012-063526

PATIENT
  Age: 60 Year
  Sex: Female

DRUGS (3)
  1. LEUKINE [Suspect]
     Indication: CHEMOTHERAPY CYTOKINE PROPHYLAXIS
     Dosage: 2 OR 3 TIMES PER WEEK
     Route: 058
     Dates: start: 20120301
  2. ANTINEOPLASTIC AGENTS [Concomitant]
     Indication: RENAL CANCER
  3. ANTINEOPLASTIC AGENTS [Concomitant]
     Indication: BLADDER CANCER

REACTIONS (4)
  - MUSCULOSKELETAL DISCOMFORT [None]
  - BACK PAIN [None]
  - CHEST PAIN [None]
  - CHEST DISCOMFORT [None]
